FAERS Safety Report 14457909 (Version 1)
Quarter: 2018Q1

REPORT INFORMATION
  Report Type: Spontaneous
  Country: US (occurrence: US)
  Receive Date: 20180130
  Receipt Date: 20180130
  Transmission Date: 20180509
  Serious: Yes (Other)
  Sender: FDA-Public Use
  Company Number: US-NOVOPROD-582466

PATIENT
  Sex: Female

DRUGS (1)
  1. NOVOLOG MIX 70/30 [Suspect]
     Active Substance: INSULIN ASPART
     Indication: PRODUCT USED FOR UNKNOWN INDICATION
     Dosage: SLIDING SCALE
     Route: 058

REACTIONS (5)
  - Tremor [Unknown]
  - Glycosylated haemoglobin increased [Unknown]
  - Portal hypertension [Unknown]
  - Night sweats [Unknown]
  - Blood glucose increased [Unknown]
